FAERS Safety Report 8136307 (Version 3)
Quarter: 2014Q1

REPORT INFORMATION
  Report Type: Report from Study
  Country: US (occurrence: US)
  Receive Date: 20110914
  Receipt Date: 20140220
  Transmission Date: 20141002
  Serious: Yes (Other)
  Sender: FDA-Public Use
  Company Number: US-ELI_LILLY_AND_COMPANY-US201109002011

PATIENT
  Age: 8 Year
  Sex: Male
  Weight: 29.1 kg

DRUGS (5)
  1. SOMATROPIN [Suspect]
     Indication: GROWTH RETARDATION
     Dosage: 0.9 MG, 7 DAYS PER WEEK
     Route: 058
     Dates: start: 20090903, end: 20100917
  2. SOMATROPIN [Suspect]
     Dosage: 0.8 MG, QD
     Route: 058
     Dates: start: 20110927
  3. DEFLAZACORT [Concomitant]
     Indication: DUCHENNE MUSCULAR DYSTROPHY
  4. FOCALIN [Concomitant]
     Indication: ATTENTION DEFICIT/HYPERACTIVITY DISORDER
  5. DIAMOX                             /00016901/ [Concomitant]
     Indication: INTRACRANIAL PRESSURE INCREASED
     Route: 065

REACTIONS (2)
  - Benign intracranial hypertension [Recovered/Resolved]
  - Drug ineffective [Unknown]
